FAERS Safety Report 17851364 (Version 2)
Quarter: 2020Q2

REPORT INFORMATION
  Report Type: Spontaneous
  Country: SE (occurrence: SE)
  Receive Date: 20200602
  Receipt Date: 20200604
  Transmission Date: 20200714
  Serious: Yes (Other)
  Sender: FDA-Public Use
  Company Number: SE-PFIZER INC-2020210570

PATIENT
  Age: 76 Year
  Sex: Male
  Weight: 88 kg

DRUGS (2)
  1. CORTISONE [Suspect]
     Active Substance: CORTISONE
     Dosage: UNK
     Route: 065
  2. METHOTREXATE SODIUM. [Suspect]
     Active Substance: METHOTREXATE SODIUM
     Indication: RHEUMATIC DISORDER
     Dosage: 7.5 MG, WEEKLY
     Route: 065

REACTIONS (4)
  - Localised infection [Recovering/Resolving]
  - Sleep apnoea syndrome [Recovered/Resolved]
  - Fungal skin infection [Recovered/Resolved]
  - Cardiac fibrillation [Recovered/Resolved]

NARRATIVE: CASE EVENT DATE: 201810
